FAERS Safety Report 5871009-6 (Version None)
Quarter: 2008Q3

REPORT INFORMATION
  Report Type: 
  Country: None (occurrence: None)
  Receive Date: 20080904
  Receipt Date: 20080903
  Transmission Date: 20090109
  Serious: Yes (Life-Threatening, Hospitalization)
  Sender: FDA-Public Use
  Company Number: GB-BAYER-200810242BNE

PATIENT
  Age: 74 Year
  Sex: Male

DRUGS (1)
  1. ULTRAVIST 300 [Suspect]
     Indication: DRUG USE FOR UNKNOWN INDICATION
     Dates: start: 20080124, end: 20080124

REACTIONS (3)
  - ANAPHYLACTIC SHOCK [None]
  - RASH [None]
  - RESPIRATORY FAILURE [None]
